FAERS Safety Report 7788333-2 (Version None)
Quarter: 2011Q3

REPORT INFORMATION
  Report Type: 
  Country: None (occurrence: None)
  Receive Date: 20110929
  Receipt Date: 20110929
  Transmission Date: 20111222
  Serious: Yes (Disabling)
  Sender: FDA-Public Use
  Company Number: None

PATIENT
  Age: 73 Year
  Sex: Female
  Weight: 72.5755 kg

DRUGS (2)
  1. PRISTIQ [Suspect]
     Indication: DYSKINESIA
     Dosage: 50MG - 100MG 1 Q AM MOUTH APPROX 3 WKS - APRIL
     Route: 048
  2. ABILIFY [Suspect]
     Indication: DEPRESSION
     Dosage: 2MG 1 Q AM  1 Q AM MOUTH
     Route: 048
     Dates: start: 20100101

REACTIONS (2)
  - TARDIVE DYSKINESIA [None]
  - DYSKINESIA [None]
